FAERS Safety Report 17962035 (Version 3)
Quarter: 2020Q4

REPORT INFORMATION
  Report Type: Spontaneous
  Country: US (occurrence: US)
  Receive Date: 20200630
  Receipt Date: 20201203
  Transmission Date: 20210113
  Serious: Yes (Other)
  Sender: FDA-Public Use
  Company Number: US-PFIZER INC-2018352366

PATIENT
  Age: 62 Year
  Sex: Female

DRUGS (8)
  1. LYRICA CR [Concomitant]
     Active Substance: PREGABALIN
     Dosage: 165 MG, 1X/DAY (PO Q HS)
     Route: 048
  2. LYRICA [Suspect]
     Active Substance: PREGABALIN
     Indication: INTERVERTEBRAL DISC DEGENERATION
     Dosage: 75 MG, UNK
  3. LYRICA [Suspect]
     Active Substance: PREGABALIN
     Indication: VERTEBRAL FORAMINAL STENOSIS
  4. LYRICA [Suspect]
     Active Substance: PREGABALIN
     Indication: GROIN PAIN
     Dosage: 100 MG, 1X/DAY
  5. LYRICA [Suspect]
     Active Substance: PREGABALIN
     Indication: GROIN PAIN
  6. LYRICA [Suspect]
     Active Substance: PREGABALIN
     Indication: SPINAL OSTEOARTHRITIS
  7. LYRICA [Suspect]
     Active Substance: PREGABALIN
     Indication: STENOSIS
  8. LYRICA [Suspect]
     Active Substance: PREGABALIN
     Indication: OEDEMA

REACTIONS (3)
  - Post-traumatic stress disorder [Unknown]
  - Mental impairment [Unknown]
  - Brain injury [Unknown]
